FAERS Safety Report 4434056-7 (Version None)
Quarter: 2004Q3

REPORT INFORMATION
  Report Type: 
  Country: None (occurrence: None)
  Receive Date: 20040825
  Receipt Date: 20040810
  Transmission Date: 20050211
  Serious: Yes (Hospitalization)
  Sender: FDA-Public Use
  Company Number: US_0408104738

PATIENT
  Age: 42 Year
  Sex: Female

DRUGS (3)
  1. ZYPREXA [Suspect]
  2. HALDOL [Concomitant]
  3. GEODON [Concomitant]

REACTIONS (8)
  - DELUSION [None]
  - EMOTIONAL DISTRESS [None]
  - FEELING JITTERY [None]
  - HALLUCINATION, AUDITORY [None]
  - INSOMNIA [None]
  - TREATMENT NONCOMPLIANCE [None]
  - UNEVALUABLE EVENT [None]
  - WEIGHT INCREASED [None]
